FAERS Safety Report 7417659-7 (Version None)
Quarter: 2011Q2

REPORT INFORMATION
  Report Type: 
  Country: None (occurrence: None)
  Receive Date: 20110415
  Receipt Date: 20110407
  Transmission Date: 20111010
  Serious: Yes (Hospitalization, Other)
  Sender: FDA-Public Use
  Company Number: US-ALEXION-A201100078

PATIENT
  Sex: Female

DRUGS (11)
  1. LOPRESSOR [Concomitant]
     Dosage: UNK
  2. NITROSTAT [Concomitant]
     Dosage: UNK
  3. LEXAPRO [Concomitant]
     Dosage: UNK
  4. LISINOPRIL [Concomitant]
  5. ASPIRIN [Concomitant]
     Dosage: UNK
  6. VICODIN [Concomitant]
     Dosage: UNK
  7. COUMADIN [Suspect]
  8. AMIODARONE HCL [Concomitant]
  9. NORVASC [Concomitant]
  10. SOLIRIS [Suspect]
     Indication: PAROXYSMAL NOCTURNAL HAEMOGLOBINURIA
     Dosage: UNK
     Route: 042
  11. IMDUR [Concomitant]

REACTIONS (9)
  - CARDIAC FAILURE CONGESTIVE [None]
  - HEART RATE IRREGULAR [None]
  - INTERNATIONAL NORMALISED RATIO DECREASED [None]
  - HYPOKALAEMIA [None]
  - CHEST PAIN [None]
  - THROMBOCYTOPENIA [None]
  - CONDITION AGGRAVATED [None]
  - HYPOMAGNESAEMIA [None]
  - ATRIAL FIBRILLATION [None]
